FAERS Safety Report 12382950 (Version 3)
Quarter: 2016Q2

REPORT INFORMATION
  Report Type: Spontaneous
  Country: FR (occurrence: FR)
  Receive Date: 20160518
  Receipt Date: 20160628
  Transmission Date: 20160815
  Serious: Yes (Hospitalization)
  Sender: FDA-Public Use
  Company Number: FR-SA-2016SA092046

PATIENT
  Age: 77 Year
  Sex: Male

DRUGS (15)
  1. OFLOCET [Suspect]
     Active Substance: OFLOXACIN
     Dosage: SCORED COATED TABLET
     Route: 048
     Dates: start: 20160320, end: 20160401
  2. BISOCE [Concomitant]
     Active Substance: BISOPROLOL
  3. IMOVANE [Concomitant]
     Active Substance: ZOPICLONE
  4. RAMIPRIL. [Concomitant]
     Active Substance: RAMIPRIL
  5. PARACETAMOL [Concomitant]
     Active Substance: ACETAMINOPHEN
  6. LANZOR [Concomitant]
     Active Substance: LANSOPRAZOLE
  7. ALPRAZOLAM. [Concomitant]
     Active Substance: ALPRAZOLAM
  8. LASILIX [Concomitant]
     Active Substance: FUROSEMIDE
  9. KARDEGIC [Concomitant]
     Active Substance: ASPIRIN LYSINE
  10. ATORVASTATIN [Suspect]
     Active Substance: ATORVASTATIN
     Route: 048
     Dates: start: 20160314, end: 20160330
  11. GENTAMICIN. [Suspect]
     Active Substance: GENTAMICIN
     Route: 065
     Dates: start: 20160322, end: 20160324
  12. DIAMICRON [Concomitant]
     Active Substance: GLICLAZIDE
  13. LOVENOX [Suspect]
     Active Substance: ENOXAPARIN SODIUM
     Route: 058
     Dates: start: 20160314, end: 20160318
  14. DIFFU K [Concomitant]
     Active Substance: POTASSIUM CHLORIDE
  15. TARDYFERON [Concomitant]
     Active Substance: FERROUS SULFATE\FOLIC ACID

REACTIONS (3)
  - Agranulocytosis [Recovered/Resolved]
  - Pancytopenia [Recovered/Resolved]
  - Cholestasis [Recovered/Resolved]

NARRATIVE: CASE EVENT DATE: 20160322
